FAERS Safety Report 5814321-9 (Version None)
Quarter: 2008Q3

REPORT INFORMATION
  Report Type: 
  Country: None (occurrence: None)
  Receive Date: 20080715
  Receipt Date: 20080701
  Transmission Date: 20090109
  Serious: No
  Sender: FDA-Public Use
  Company Number: 2008SP012378

PATIENT
  Age: 69 Year
  Sex: Female

DRUGS (1)
  1. CLARITIN-D 24 HOUR [Suspect]
     Indication: SINUS CONGESTION
     Dosage: 10 MG; ONCE
     Dates: start: 20080618, end: 20080618

REACTIONS (2)
  - CHEST PAIN [None]
  - SOMNOLENCE [None]
